FAERS Safety Report 21280052 (Version 1)
Quarter: 2022Q3

REPORT INFORMATION
  Report Type: Spontaneous
  Country: US (occurrence: None)
  Receive Date: 20220831
  Receipt Date: 20220831
  Transmission Date: 20221027
  Serious: No
  Sender: FDA-Public Use
  Company Number: None

PATIENT
  Sex: Male

DRUGS (22)
  1. AMBRISENTAN [Suspect]
     Active Substance: AMBRISENTAN
     Indication: Pulmonary arterial hypertension
     Dosage: FREQUENCY : DAILY;?
     Route: 048
  2. HYDROXYZINE HYDROCHLORIDE [Concomitant]
     Active Substance: HYDROXYZINE HYDROCHLORIDE
  3. MONTELUKAST SODIUM [Concomitant]
     Active Substance: MONTELUKAST SODIUM
  4. VOLTAREN [Concomitant]
     Active Substance: DICLOFENAC SODIUM
  5. ACETAMINOPHEN [Concomitant]
     Active Substance: ACETAMINOPHEN
  6. OMEPRAZOLE [Concomitant]
     Active Substance: OMEPRAZOLE
  7. MIRALAX [Concomitant]
     Active Substance: POLYETHYLENE GLYCOL 3350
  8. ARTHRITIS PAIN RELIEF [Concomitant]
     Active Substance: ACETAMINOPHEN
  9. FISH OIL [Concomitant]
     Active Substance: FISH OIL
  10. CENTRUM SILVER 50+MEN [Concomitant]
  11. HERBALS\SAW PALMETTO [Concomitant]
     Active Substance: HERBALS\SAW PALMETTO
  12. ZINC [Concomitant]
     Active Substance: ZINC
  13. DOCUSATE SODIUM [Concomitant]
     Active Substance: DOCUSATE SODIUM
  14. HAIR/SKIN/NAILS [Concomitant]
  15. LUTEIN [Concomitant]
     Active Substance: LUTEIN
  16. OMEGA 3 [Concomitant]
     Active Substance: CAPSAICIN
  17. MAGNESIUM ELEMENTAL [Concomitant]
  18. ASPIRIN [Concomitant]
     Active Substance: ASPIRIN
  19. TIZANIDINE HYDROCHLORIDE [Concomitant]
     Active Substance: TIZANIDINE HYDROCHLORIDE
  20. BUMETANIDE|PANTOPRAZOLE SODIUM [Concomitant]
  21. IRON|AMOXICILLIN [Concomitant]
  22. FERROUS SULFATE| TRAMADOL HCL [Concomitant]

REACTIONS (4)
  - Fungal infection [None]
  - Inflammation [None]
  - Swelling [None]
  - Candida infection [None]
